FAERS Safety Report 22652112 (Version 1)
Quarter: 2023Q2

REPORT INFORMATION
  Report Type: Spontaneous
  Country: US (occurrence: US)
  Receive Date: 20230628
  Receipt Date: 20230628
  Transmission Date: 20230722
  Serious: No
  Sender: FDA-Public Use
  Company Number: US-LUNDBECK-DKLU3062310

PATIENT
  Age: 55 Year

DRUGS (2)
  1. VYEPTI [Suspect]
     Active Substance: EPTINEZUMAB-JJMR
     Indication: Product used for unknown indication
     Route: 041
     Dates: start: 20230427
  2. EMOVIG [Concomitant]
     Indication: Migraine
     Route: 065

REACTIONS (10)
  - Dizziness [Unknown]
  - Headache [Unknown]
  - Migraine [Not Recovered/Not Resolved]
  - Confusional state [Unknown]
  - Malaise [Unknown]
  - Vertigo [Unknown]
  - Feeling abnormal [Unknown]
  - Panic reaction [Unknown]
  - Depressed mood [Unknown]
  - Drug ineffective [Unknown]
